FAERS Safety Report 7693430-6 (Version None)
Quarter: 2011Q3

REPORT INFORMATION
  Report Type: 
  Country: None (occurrence: None)
  Receive Date: 20110819
  Receipt Date: 20110812
  Transmission Date: 20111222
  Serious: Yes (Hospitalization, Other)
  Sender: FDA-Public Use
  Company Number: US-ACTELION-A-US2011-50538

PATIENT

DRUGS (2)
  1. TRACLEER [Suspect]
     Indication: PULMONARY ARTERIAL HYPERTENSION
     Dosage: UNK
     Route: 048
     Dates: start: 20090721
  2. ADCIRCA [Concomitant]

REACTIONS (5)
  - COUGH [None]
  - RENAL DISORDER [None]
  - PHARYNGEAL HAEMORRHAGE [None]
  - EPISTAXIS [None]
  - DYSPNOEA [None]
